FAERS Safety Report 6422236-0 (Version None)
Quarter: 2009Q4

REPORT INFORMATION
  Report Type: 
  Country: None (occurrence: None)
  Receive Date: 20091029
  Receipt Date: 20091029
  Transmission Date: 20100525
  Serious: Yes (Other)
  Sender: FDA-Public Use
  Company Number: None

PATIENT
  Sex: Female
  Weight: 51.8 kg

DRUGS (3)
  1. HUMIRA [Suspect]
     Indication: COLITIS ULCERATIVE
     Dosage: 40 MG EVERY 2 WKS SC
     Route: 058
     Dates: start: 20090701
  2. PENTASA [Concomitant]
  3. ORTHO TRI-CYCLEN [Concomitant]

REACTIONS (2)
  - FOLLICULITIS [None]
  - PUSTULAR PSORIASIS [None]
